FAERS Safety Report 6301319-X (Version None)
Quarter: 2009Q3

REPORT INFORMATION
  Report Type: 
  Country: None (occurrence: None)
  Receive Date: 20090807
  Receipt Date: 20090727
  Transmission Date: 20100115
  Serious: Yes (Death)
  Sender: FDA-Public Use
  Company Number: BR-PFIZER INC-2009244321

PATIENT
  Age: 79 Year

DRUGS (6)
  1. REVATIO [Suspect]
     Indication: PULMONARY ARTERIAL HYPERTENSION
     Dosage: 20 MG, 2X/DAY
     Route: 048
     Dates: start: 20090610
  2. COZAAR [Concomitant]
     Dosage: UNK
     Dates: end: 20090711
  3. ALLOPURINOL [Concomitant]
     Dosage: UNK
     Dates: end: 20090711
  4. FRONTAL [Concomitant]
     Dosage: UNK
     Dates: end: 20090711
  5. TAPAZOL [Concomitant]
     Dosage: UNK
     Dates: end: 20090711
  6. SINVALIP [Concomitant]
     Dosage: UNK
     Dates: end: 20090711

REACTIONS (6)
  - ACUTE RESPIRATORY FAILURE [None]
  - INFECTION [None]
  - PANCREATITIS [None]
  - PULMONARY HYPERTENSION [None]
  - SEPTIC SHOCK [None]
  - SYSTEMIC INFLAMMATORY RESPONSE SYNDROME [None]
